FAERS Safety Report 15265979 (Version 1)
Quarter: 2018Q3

REPORT INFORMATION
  Report Type: Spontaneous
  Country: DK (occurrence: DK)
  Receive Date: 20180810
  Receipt Date: 20180810
  Transmission Date: 20181010
  Serious: Yes (Death, Other)
  Sender: FDA-Public Use
  Company Number: DK-JNJFOC-20160419478

PATIENT

DRUGS (7)
  1. CYCLOSPORINE. [Concomitant]
     Active Substance: CYCLOSPORINE
     Indication: GRAFT VERSUS HOST DISEASE
     Route: 065
  2. SIROLIMUS. [Concomitant]
     Active Substance: SIROLIMUS
     Indication: GRAFT VERSUS HOST DISEASE
     Route: 065
  3. MERCAPTOPURINE. [Concomitant]
     Active Substance: MERCAPTOPURINE
     Indication: GRAFT VERSUS HOST DISEASE
     Route: 065
  4. MERCAPTOPURINE. [Concomitant]
     Active Substance: MERCAPTOPURINE
     Indication: GRAFT VERSUS HOST DISEASE
     Route: 065
  5. TACROLIMUS. [Concomitant]
     Active Substance: TACROLIMUS
     Indication: GRAFT VERSUS HOST DISEASE
     Route: 065
  6. INFLIXIMAB, RECOMBINANT [Suspect]
     Active Substance: INFLIXIMAB
     Indication: GRAFT VERSUS HOST DISEASE
     Route: 042
  7. MYCOPHENOLATE MOFETIL. [Concomitant]
     Active Substance: MYCOPHENOLATE MOFETIL
     Indication: GRAFT VERSUS HOST DISEASE
     Route: 065

REACTIONS (38)
  - Torulopsis infection [Unknown]
  - Moraxella infection [Unknown]
  - Streptococcal infection [Unknown]
  - Bacterial infection [Unknown]
  - Off label use [Unknown]
  - Viral infection [Fatal]
  - Micrococcus infection [Unknown]
  - Staphylococcal infection [Unknown]
  - Gastroenteritis norovirus [Unknown]
  - Bacterial infection [Fatal]
  - Listeriosis [Unknown]
  - Epstein-Barr virus infection [Unknown]
  - Human polyomavirus infection [Unknown]
  - Aeromonas infection [Unknown]
  - Fungal infection [Unknown]
  - Citrobacter infection [Unknown]
  - Escherichia infection [Unknown]
  - Aspergillus infection [Unknown]
  - Human bocavirus infection [Unknown]
  - Adenovirus infection [Unknown]
  - Pneumonia klebsiella [Unknown]
  - Enterococcal infection [Unknown]
  - Haemophilus infection [Unknown]
  - Legionella infection [Unknown]
  - Influenza [Unknown]
  - Corona virus infection [Unknown]
  - Human metapneumovirus test positive [Unknown]
  - Varicella zoster virus infection [Unknown]
  - Drug ineffective for unapproved indication [Unknown]
  - Candida infection [Unknown]
  - Cytomegalovirus infection [Unknown]
  - Respiratory syncytial virus infection [Unknown]
  - Rotavirus infection [Unknown]
  - Fungal infection [Fatal]
  - Pseudomonas infection [Unknown]
  - Pneumonia streptococcal [Unknown]
  - Trichosporon infection [Unknown]
  - Clostridium difficile infection [Unknown]
